FAERS Safety Report 9463147 (Version 2)
Quarter: 2013Q4

REPORT INFORMATION
  Report Type: Spontaneous
  Country: IT (occurrence: IT)
  Receive Date: 20130817
  Receipt Date: 20131119
  Transmission Date: 20140711
  Serious: Yes (Other)
  Sender: FDA-Public Use
  Company Number: IT-ACCORD-018970

PATIENT
  Age: 64 Year
  Sex: Female

DRUGS (1)
  1. PACLITAXEL [Suspect]
     Indication: LUNG ADENOCARCINOMA
     Route: 042
     Dates: start: 20130703, end: 20130710

REACTIONS (3)
  - Bronchospasm [Recovered/Resolved]
  - Vomiting [Recovered/Resolved]
  - Paraesthesia oral [Recovered/Resolved]
